FAERS Safety Report 7681109-6 (Version None)
Quarter: 2011Q3

REPORT INFORMATION
  Report Type: 
  Country: None (occurrence: None)
  Receive Date: 20110812
  Receipt Date: 20110809
  Transmission Date: 20111222
  Serious: No
  Sender: FDA-Public Use
  Company Number: US-PFIZER INC-2011139995

PATIENT
  Sex: Female
  Weight: 90.703 kg

DRUGS (5)
  1. LIPITOR [Suspect]
     Indication: HYPERTENSION
     Dosage: UNK
     Route: 048
  2. SYNTHROID [Concomitant]
     Indication: HYPOTHYROIDISM
     Dosage: UNK, DAILY
  3. ATENOLOL [Concomitant]
     Indication: HYPERTENSION
     Dosage: UNK, 2X/DAY
  4. VALSARTAN [Suspect]
     Indication: HYPERTENSION
     Dosage: UNK, DAILY
     Route: 048
     Dates: end: 20101201
  5. TRIAZOLAM [Suspect]
     Indication: INSOMNIA
     Dosage: 0.25 MG, DAILY
     Route: 048
     Dates: end: 20110616

REACTIONS (5)
  - PRODUCT QUALITY ISSUE [None]
  - ERYTHEMA [None]
  - ABDOMINAL DISCOMFORT [None]
  - MUSCLE DISORDER [None]
  - FEELING ABNORMAL [None]
